FAERS Safety Report 8366515-9 (Version None)
Quarter: 2012Q2

REPORT INFORMATION
  Report Type: 
  Country: None (occurrence: None)
  Receive Date: 20120517
  Receipt Date: 20120510
  Transmission Date: 20120825
  Serious: Yes (Hospitalization)
  Sender: FDA-Public Use
  Company Number: PHHY2012CH040690

PATIENT
  Age: 68 Year
  Sex: Male

DRUGS (9)
  1. CLOZAPINE [Suspect]
     Dosage: 62.5 MG, UNK
     Route: 048
     Dates: start: 20110913, end: 20110917
  2. DIPIPERON [Concomitant]
     Dosage: 140 MG, UNK
     Dates: start: 20110914, end: 20110915
  3. CLOZAPINE [Suspect]
     Dosage: 25 MG, UNK
     Route: 048
     Dates: start: 20110907, end: 20110909
  4. CLOZAPINE [Suspect]
     Dosage: 37.5 MG, UNK
     Route: 048
     Dates: start: 20110910, end: 20110912
  5. DIPIPERON [Concomitant]
     Dosage: 80 MG, UNK
     Dates: start: 20110913, end: 20110913
  6. DIPIPERON [Concomitant]
     Dosage: 40 MG, UNK
     Dates: start: 20110905, end: 20110912
  7. LANTUS [Concomitant]
     Indication: TYPE 2 DIABETES MELLITUS
     Dosage: 10 IU, UNK
     Route: 058
     Dates: start: 20100101
  8. CLOZAPINE [Suspect]
     Indication: AKATHISIA
     Dosage: 12.5 MG, UNK
     Route: 048
     Dates: start: 20110901, end: 20110906
  9. DIPIPERON [Concomitant]
     Dosage: 80 MG, UNK
     Dates: start: 20110916

REACTIONS (3)
  - AGGRESSION [None]
  - INTENTIONAL SELF-INJURY [None]
  - PSYCHOMOTOR HYPERACTIVITY [None]
